FAERS Safety Report 6271992-3 (Version None)
Quarter: 2009Q3

REPORT INFORMATION
  Report Type: 
  Country: None (occurrence: None)
  Receive Date: 20090715
  Receipt Date: 20090707
  Transmission Date: 20100115
  Serious: Yes (Other)
  Sender: FDA-Public Use
  Company Number: SPV1-2009-01415

PATIENT
  Age: 12 Year
  Sex: Female

DRUGS (1)
  1. VYVANSE [Suspect]
     Indication: DRUG USE FOR UNKNOWN INDICATION
     Dosage: 30 MG, ORAL
     Route: 048
     Dates: end: 20090601

REACTIONS (3)
  - ARRHYTHMIA [None]
  - HEART RATE INCREASED [None]
  - SYNCOPE [None]
